FAERS Safety Report 16082800 (Version 1)
Quarter: 2019Q1

REPORT INFORMATION
  Report Type: Spontaneous
  Country: SE (occurrence: SE)
  Receive Date: 20190318
  Receipt Date: 20190318
  Transmission Date: 20190418
  Serious: Yes (Other)
  Sender: FDA-Public Use
  Company Number: SE-TEVA-2019-SE-1024491

PATIENT
  Age: 43 Year
  Sex: Female

DRUGS (28)
  1. METFORMIN [Suspect]
     Active Substance: METFORMIN HYDROCHLORIDE
     Indication: TYPE 2 DIABETES MELLITUS
     Dosage: 2+0+1+0
     Route: 048
     Dates: end: 20190129
  2. ESTRADOT 50 MIKROGRAM/24 TIMMAR DEPOTPL?STER [Concomitant]
  3. XERODENT 28,6 MG/0,25 MG SUGTABLETT [Concomitant]
  4. LOCOID LIPID 0,1 % KR?M [Concomitant]
  5. IKTORIVIL 0,5 MG TABLETT [Concomitant]
  6. ACICLOVIR SANDOZ 400 MG TABLETT [Concomitant]
  7. INOLAXOL  ORALT PULVER I DOSP?SE [Concomitant]
  8. MOMETASON ABECE 50 MIKROGRAM/DOS NASSPRAY, SUSPENSION [Concomitant]
  9. CYPROTERON MYLAN 50 MG TABLETT [Concomitant]
  10. LIVOSTIN 0,5 MG/ML ?GONDROPPAR, SUSPENSION [Concomitant]
  11. DULOXETINE SANDOZ 30 MG ENTEROKAPSEL, H?RD [Concomitant]
  12. ALVEDON 500 MG FILMDRAGERAD TABLETT [Concomitant]
  13. ANDROCUR 50 MG TABLETT [Concomitant]
  14. FLUCONAZOL KRKA 150 MG KAPSEL, H?RD [Concomitant]
  15. VI-SIBLIN 610 MG/G GRANULAT I DOSP?SE [Concomitant]
  16. ORUDIS 2,5 % GEL [Concomitant]
  17. DERMOVAT 0,05 % KR?M [Concomitant]
  18. OXIS TURBUHALER 9 MIKROGRAM/DOS INHALATIONSPULVER [Concomitant]
  19. ALVEDON FORTE 1 G FILMDRAGERAD TABLETT [Concomitant]
  20. LAMOTRIGIN ACTAVIS 100 MG TABLETT [Concomitant]
  21. DIVISUN 800 IE TABLETT [Concomitant]
  22. KLYX 1MG/ML+250MG/ML REKTALL?SNING [Concomitant]
  23. MELATONIN AGB 2 MG TABLETT [Concomitant]
  24. OCULAC 50 MG/ML ?GONDROPPAR, L?SNING I ENDOSBEH?LLARE [Concomitant]
  25. LORATADIN RATIOPHARM 10 MG TABLETT [Concomitant]
  26. PULMICORT TURBUHALER 200 MIKROGRAM/DOS INHALATIONSPULVER [Concomitant]
  27. PEVARYL [Concomitant]
     Active Substance: ECONAZOLE NITRATE
  28. CELEBRA 100 MG KAPSEL, H?RD [Concomitant]

REACTIONS (2)
  - Hypoglycaemia [Recovered/Resolved]
  - Pruritus [Recovered/Resolved]

NARRATIVE: CASE EVENT DATE: 201810
